FAERS Safety Report 16136255 (Version 11)
Quarter: 2019Q4

REPORT INFORMATION
  Report Type: Spontaneous
  Country: CN (occurrence: CN)
  Receive Date: 20190329
  Receipt Date: 20191216
  Transmission Date: 20200122
  Serious: Yes (Death, Life-Threatening)
  Sender: FDA-Public Use
  Company Number: CN-CELGENEUS-CHN-20190310363

PATIENT
  Age: 77 Year
  Sex: Male
  Weight: 60 kg

DRUGS (65)
  1. POTASSIUM CHLORIDE. [Concomitant]
     Active Substance: POTASSIUM CHLORIDE
     Dosage: 3 GRAM
     Route: 048
     Dates: start: 20190309, end: 20190325
  2. SODIUM BICARBONATE. [Concomitant]
     Active Substance: SODIUM BICARBONATE
     Dosage: 250 MILLILITER
     Route: 041
     Dates: start: 20190303, end: 20190315
  3. AMBROXOL [Concomitant]
     Active Substance: AMBROXOL
     Dosage: 30 MILLIGRAM
     Route: 048
     Dates: start: 20190227
  4. MEROPENEM. [Concomitant]
     Active Substance: MEROPENEM
     Indication: RESPIRATORY TRACT INFECTION
     Dosage: 2000 MILLIGRAM
     Route: 041
     Dates: start: 20190327, end: 20190327
  5. OMEPRAZOLE SODIUM [Concomitant]
     Active Substance: OMEPRAZOLE SODIUM
     Indication: UPPER GASTROINTESTINAL HAEMORRHAGE
     Dosage: 80 MILLIGRAM
     Route: 041
     Dates: start: 20190330, end: 20190410
  6. GRANULOCYTE COLONY STIMULATING FACTOR [Concomitant]
     Active Substance: GRANULOCYTE COLONY-STIMULATING FACTOR NOS
     Dosage: 150 MICROGRAM
     Route: 058
     Dates: start: 20190316, end: 20190318
  7. GRANULOCYTE COLONY STIMULATING FACTOR [Concomitant]
     Active Substance: GRANULOCYTE COLONY-STIMULATING FACTOR NOS
     Dosage: 150 MICROGRAM
     Route: 058
     Dates: start: 20190319, end: 20190320
  8. GRANULOCYTE COLONY STIMULATING FACTOR [Concomitant]
     Active Substance: GRANULOCYTE COLONY-STIMULATING FACTOR NOS
     Dosage: 300 MICROGRAM
     Route: 058
     Dates: start: 20190320, end: 20190320
  9. CASPOFUNGIN ACETATE. [Concomitant]
     Active Substance: CASPOFUNGIN ACETATE
     Indication: RESPIRATORY TRACT INFECTION
     Dosage: 70 MILLIGRAM
     Route: 041
     Dates: start: 20190311, end: 20190311
  10. COMPOUND CODEINE PHOSPHATE [Concomitant]
     Indication: RESPIRATORY TRACT INFECTION
     Dosage: 150 MILLILITER
     Route: 048
     Dates: start: 20190228, end: 20190228
  11. DEXAMETHASONE SODIUM PHOSPHATE. [Concomitant]
     Active Substance: DEXAMETHASONE SODIUM PHOSPHATE
     Indication: PYREXIA
     Dosage: 5 MILLIGRAM
     Route: 041
     Dates: start: 20190318, end: 20190318
  12. ONDANSETRON HYDROCHLORIDE. [Concomitant]
     Active Substance: ONDANSETRON HYDROCHLORIDE
     Indication: PROPHYLAXIS OF NAUSEA AND VOMITING
     Dosage: 4 MILLIGRAM
     Route: 041
     Dates: start: 20190307, end: 20190313
  13. RECOMBINANT HUMAN THROMBOPOIETIN [Concomitant]
     Active Substance: THROMBOPOIETIN
     Indication: THROMBOCYTOPENIA
     Dosage: 15000 IU (INTERNATIONAL UNIT)
     Route: 058
     Dates: start: 20190309, end: 20190325
  14. TIGECYCLINE. [Concomitant]
     Active Substance: TIGECYCLINE
     Indication: RESPIRATORY TRACT INFECTION
     Dosage: 100 MILLIGRAM
     Route: 041
     Dates: start: 20190319, end: 20190319
  15. TIGECYCLINE. [Concomitant]
     Active Substance: TIGECYCLINE
     Dosage: 100 MILLIGRAM
     Route: 041
     Dates: start: 20190327
  16. POTASSIUM CHLORIDE. [Concomitant]
     Active Substance: POTASSIUM CHLORIDE
     Dosage: 2 GRAM
     Route: 048
     Dates: start: 20190308, end: 20190308
  17. GLUCOSE [Concomitant]
     Active Substance: DEXTROSE
     Indication: PROPHYLAXIS
     Route: 041
     Dates: start: 20190222, end: 20190303
  18. SODIUM CHLORIDE. [Concomitant]
     Active Substance: SODIUM CHLORIDE
     Indication: NUTRITIONAL SUPPLEMENTATION
     Dosage: 30 MILLILITER
     Route: 041
     Dates: start: 20190327, end: 20190328
  19. MONTMORILLONITE [Concomitant]
     Active Substance: MONTMORILLONITE
     Dosage: 3 GRAM
     Route: 048
     Dates: start: 20190327, end: 20190327
  20. SULPERAZON [Concomitant]
     Active Substance: CEFOPERAZONE SODIUM\SULBACTAM SODIUM
     Indication: RESPIRATORY TRACT INFECTION
     Dosage: 9 GRAM
     Route: 041
     Dates: start: 20190319, end: 20190327
  21. OMEPRAZOLE SODIUM [Concomitant]
     Active Substance: OMEPRAZOLE SODIUM
     Indication: PROPHYLAXIS
     Dosage: 40 MILLIGRAM
     Route: 041
     Dates: start: 20190411
  22. GRANULOCYTE COLONY STIMULATING FACTOR [Concomitant]
     Active Substance: GRANULOCYTE COLONY-STIMULATING FACTOR NOS
     Indication: NEUTROPENIA
     Dosage: 150 MICROGRAM
     Route: 058
     Dates: start: 20190309, end: 20190310
  23. SODIUM GLYCEROPHOSPHATE [Concomitant]
     Active Substance: SODIUM GLYCEROPHOSPHATE
     Indication: NUTRITIONAL SUPPLEMENTATION
     Dosage: 5 MILLILITER
     Route: 041
     Dates: start: 20190327, end: 20190330
  24. VORICONAZOLE. [Concomitant]
     Active Substance: VORICONAZOLE
     Indication: FUNGAL INFECTION
     Dosage: 200 MILLIGRAM
     Route: 041
     Dates: start: 20190409
  25. AZACITIDINE. [Suspect]
     Active Substance: AZACITIDINE
     Indication: ACUTE MYELOID LEUKAEMIA
     Dosage: 75 MILLIGRAM/SQ. METER
     Route: 058
     Dates: start: 20190306, end: 20190312
  26. GLUCOSE [Concomitant]
     Active Substance: DEXTROSE
     Dosage: 3.5 LITERS
     Route: 048
     Dates: start: 20190309
  27. COMPOUND GLYCYRRHIZA [Concomitant]
     Dosage: 30 MILLILITER
     Route: 048
     Dates: start: 20190313, end: 20190313
  28. DOMPERIDONE [Concomitant]
     Active Substance: DOMPERIDONE
     Indication: VOMITING
     Dosage: 30 MILLIGRAM
     Route: 048
     Dates: start: 20190322, end: 20190325
  29. HUMAN FIBRINOGEN [Concomitant]
     Indication: HYPOFIBRINOGENAEMIA
     Dosage: 1 GRAM
     Route: 041
     Dates: start: 20190329
  30. ONDANSETRON HYDROCHLORIDE. [Concomitant]
     Active Substance: ONDANSETRON HYDROCHLORIDE
     Dosage: 4 MILLIGRAM
     Route: 041
     Dates: start: 20190321, end: 20190325
  31. GRANULOCYTE COLONY STIMULATING FACTOR [Concomitant]
     Active Substance: GRANULOCYTE COLONY-STIMULATING FACTOR NOS
     Dosage: 300 MICROGRAM
     Route: 058
     Dates: start: 20190321, end: 20190407
  32. GLUCOSE [Concomitant]
     Active Substance: DEXTROSE
     Dosage: 80 MILLILITER
     Route: 041
     Dates: start: 20190327, end: 201904
  33. DEXAMETHASONE SODIUM PHOSPHATE. [Concomitant]
     Active Substance: DEXAMETHASONE SODIUM PHOSPHATE
     Route: 041
     Dates: start: 20190329, end: 20190412
  34. HUMAN ALBUMIN [Concomitant]
     Active Substance: ALBUMIN HUMAN
     Indication: HYPOALBUMINAEMIA
     Dosage: 10 GRAM
     Route: 048
     Dates: start: 20190224
  35. ONDANSETRON HYDROCHLORIDE. [Concomitant]
     Active Substance: ONDANSETRON HYDROCHLORIDE
     Indication: VOMITING
     Dosage: 8 MILLIGRAM
     Route: 041
     Dates: start: 20190306, end: 20190306
  36. GRANULOCYTE COLONY STIMULATING FACTOR [Concomitant]
     Active Substance: GRANULOCYTE COLONY-STIMULATING FACTOR NOS
     Indication: LEUKOPENIA
     Dosage: 150 MICROGRAM
     Route: 058
     Dates: start: 20190315, end: 20190315
  37. POTASSIUM CHLORIDE. [Concomitant]
     Active Substance: POTASSIUM CHLORIDE
     Indication: HYPOKALAEMIA
     Dosage: 10-50 ML
     Route: 041
     Dates: start: 20190222, end: 20190411
  38. POTASSIUM CHLORIDE. [Concomitant]
     Active Substance: POTASSIUM CHLORIDE
     Dosage: 2 GRAM
     Route: 048
     Dates: start: 20190223, end: 20190223
  39. POTASSIUM CHLORIDE. [Concomitant]
     Active Substance: POTASSIUM CHLORIDE
     Dosage: 1 GRAM
     Route: 048
     Dates: start: 20190224, end: 20190224
  40. POTASSIUM CHLORIDE. [Concomitant]
     Active Substance: POTASSIUM CHLORIDE
     Dosage: 1.5 GRAM
     Route: 048
     Dates: start: 20190225, end: 20190225
  41. POTASSIUM CHLORIDE. [Concomitant]
     Active Substance: POTASSIUM CHLORIDE
     Dosage: 3 GRAM
     Route: 048
     Dates: start: 20190226, end: 20190303
  42. SODIUM BICARBONATE. [Concomitant]
     Active Substance: SODIUM BICARBONATE
     Dosage: 3 GRAM
     Route: 048
     Dates: start: 20190223, end: 20190303
  43. GLUCOSE [Concomitant]
     Active Substance: DEXTROSE
     Indication: NUTRITIONAL SUPPLEMENTATION
     Route: 041
     Dates: start: 20190304, end: 20190307
  44. MONTMORILLONITE [Concomitant]
     Active Substance: MONTMORILLONITE
     Indication: DIARRHOEA
     Dosage: 3 GRAM
     Route: 048
     Dates: start: 20190324, end: 20190324
  45. CHLORPHENIRAMINE MALEATE. [Concomitant]
     Active Substance: CHLORPHENIRAMINE MALEATE
     Indication: PROPHYLAXIS
     Route: 048
     Dates: start: 20190223, end: 20190324
  46. COMPOUND CODEINE PHOSPHATE [Concomitant]
     Dosage: 15 MILLILITER
     Route: 048
     Dates: start: 20190313, end: 20190313
  47. COMPOUND GLYCYRRHIZA [Concomitant]
     Indication: RESPIRATORY TRACT INFECTION
     Dosage: 180 MILLILITER
     Route: 048
     Dates: start: 20190226, end: 20190226
  48. INSULIN [Concomitant]
     Active Substance: INSULIN NOS
     Indication: PRODUCT USED FOR UNKNOWN INDICATION
     Dosage: 6-12 UNITS
     Route: 041
     Dates: start: 20190327, end: 20190412
  49. MEROPENEM. [Concomitant]
     Active Substance: MEROPENEM
     Dosage: 3000 MILLIGRAM
     Route: 041
     Dates: start: 20190328, end: 20190331
  50. MEROPENEM. [Concomitant]
     Active Substance: MEROPENEM
     Dosage: 2000 MILLIGRAM
     Route: 041
     Dates: start: 20190331, end: 20190331
  51. MEROPENEM. [Concomitant]
     Active Substance: MEROPENEM
     Dosage: 3000 MILLIGRAM
     Route: 041
     Dates: start: 20190401
  52. TIGECYCLINE. [Concomitant]
     Active Substance: TIGECYCLINE
     Dosage: 100 MILLIGRAM
     Route: 041
     Dates: start: 20190320, end: 20190325
  53. LIPOVENOES MCT [Concomitant]
     Active Substance: EGG PHOSPHOLIPIDS\GLYCERIN\MEDIUM-CHAIN TRIGLYCERIDES\SOYBEAN OIL
     Indication: NUTRITIONAL SUPPLEMENTATION
     Dosage: 150 MILLILITER
     Route: 041
     Dates: start: 20190330
  54. GLUCOSE [Concomitant]
     Active Substance: DEXTROSE
     Dosage: 400 MILLILITER
     Route: 041
     Dates: start: 20190327
  55. CASPOFUNGIN ACETATE. [Concomitant]
     Active Substance: CASPOFUNGIN ACETATE
     Dosage: 50 MILLIGRAM
     Route: 041
     Dates: start: 20190312, end: 20190327
  56. DEXAMETHASONE SODIUM PHOSPHATE. [Concomitant]
     Active Substance: DEXAMETHASONE SODIUM PHOSPHATE
     Indication: PROPHYLAXIS
     Dosage: 5 MILLIGRAM
     Route: 041
     Dates: start: 20190326, end: 20190327
  57. TAMSULOSIN HYDROCHLORIDE. [Concomitant]
     Active Substance: TAMSULOSIN HYDROCHLORIDE
     Indication: BENIGN PROSTATIC HYPERPLASIA
     Dosage: .2 MILLIGRAM
     Route: 048
     Dates: start: 20190302, end: 20190325
  58. WATER SOLUBLE VITAMIN FOR INJECTION [Concomitant]
     Indication: NUTRITIONAL SUPPLEMENTATION
     Dosage: 1 DOSAGE FORMS
     Route: 041
     Dates: start: 20190327
  59. VENETOCLAX. [Concomitant]
     Active Substance: VENETOCLAX
     Indication: ACUTE MYELOID LEUKAEMIA
     Route: 065
  60. METRONIDAZOLE. [Concomitant]
     Active Substance: METRONIDAZOLE
     Indication: INFECTION PROPHYLAXIS
     Route: 065
     Dates: start: 20190223, end: 20190327
  61. SODIUM BICARBONATE. [Concomitant]
     Active Substance: SODIUM BICARBONATE
     Indication: PROPHYLAXIS
     Dosage: 1 GRAM
     Route: 048
     Dates: start: 20190222, end: 20190222
  62. GLUCOSE [Concomitant]
     Active Substance: DEXTROSE
     Route: 041
     Dates: start: 20190308, end: 20190308
  63. AMBROXOL [Concomitant]
     Active Substance: AMBROXOL
     Indication: RESPIRATORY TRACT INFECTION
     Dosage: 30 MILLIGRAM
     Route: 041
     Dates: start: 20190226, end: 20190226
  64. COMPOUND GLYCYRRHIZA [Concomitant]
     Dosage: 180 MILLILITER
     Route: 048
     Dates: start: 20190310, end: 20190310
  65. COMPOUND AMINO ACID INJECTION [Concomitant]
     Active Substance: AMINO ACIDS, SOURCE UNSPECIFIED
     Indication: NUTRITIONAL SUPPLEMENTATION
     Dosage: 1 DOSAGE FORMS
     Route: 041
     Dates: start: 20190327

REACTIONS (4)
  - Hypernatraemia [Unknown]
  - Cerebral infarction [Recovered/Resolved]
  - Cerebral infarction [Fatal]
  - Hypotension [Unknown]

NARRATIVE: CASE EVENT DATE: 20190325
